FAERS Safety Report 9325216 (Version 1)
Quarter: 2013Q2

REPORT INFORMATION
  Report Type: Spontaneous
  Country: US (occurrence: US)
  Receive Date: 20130604
  Receipt Date: 20130604
  Transmission Date: 20140414
  Serious: Yes (Other)
  Sender: FDA-Public Use
  Company Number: US-AMGEN-USASP2013038531

PATIENT
  Age: 52 Year
  Sex: 0

DRUGS (2)
  1. EPOGEN [Suspect]
     Indication: NEPHROGENIC ANAEMIA
     Dosage: 17500 UNIT, 3 TIMES/WK
     Route: 065
  2. EPOGEN [Suspect]
     Indication: MYELODYSPLASTIC SYNDROME

REACTIONS (2)
  - Osteomyelitis [Not Recovered/Not Resolved]
  - Diabetic foot infection [Not Recovered/Not Resolved]
